FAERS Safety Report 4667766-7 (Version None)
Quarter: 2005Q2

REPORT INFORMATION
  Report Type: 
  Country: None (occurrence: None)
  Receive Date: 20050520
  Receipt Date: 20050519
  Transmission Date: 20051028
  Serious: Yes (Hospitalization)
  Sender: FDA-Public Use
  Company Number: US-GLAXOSMITHKLINE-A0559351A

PATIENT
  Age: 61 Year
  Sex: Male

DRUGS (2)
  1. AVANDIA [Suspect]
     Route: 048
     Dates: start: 20021101, end: 20030214
  2. BLOOD PRESSURE MEDICATION [Suspect]
     Route: 065

REACTIONS (3)
  - CORONARY ARTERY OCCLUSION [None]
  - HAIR GROWTH ABNORMAL [None]
  - NASAL POLYPS [None]
